FAERS Safety Report 22361948 (Version 1)
Quarter: 2023Q2

REPORT INFORMATION
  Report Type: Report from Study
  Country: DE (occurrence: DE)
  Receive Date: 20230524
  Receipt Date: 20230524
  Transmission Date: 20230722
  Serious: Yes (Other)
  Sender: FDA-Public Use
  Company Number: DE-BAYER-2023A067805

PATIENT
  Age: 57 Year
  Sex: Male

DRUGS (2)
  1. GADOBUTROL [Suspect]
     Active Substance: GADOBUTROL
     Dosage: 9 ML
  2. GADOBUTROL [Suspect]
     Active Substance: GADOBUTROL
     Dosage: 10 ML

REACTIONS (2)
  - Small fibre neuropathy [None]
  - Contrast media deposition [None]
